FAERS Safety Report 7611259-1 (Version None)
Quarter: 2011Q3

REPORT INFORMATION
  Report Type: 
  Country: None (occurrence: None)
  Receive Date: 20110715
  Receipt Date: 20110711
  Transmission Date: 20111222
  Serious: Yes (Hospitalization)
  Sender: FDA-Public Use
  Company Number: DE-PFIZER INC-2011135217

PATIENT
  Age: 63 Year
  Sex: Male

DRUGS (5)
  1. BISOPROLOL [Concomitant]
     Dosage: 2.5 MG, 1X/DAY
     Dates: start: 20100101
  2. SIMVASTATIN [Concomitant]
     Dosage: 200 MG, 1X/DAY
     Dates: start: 20100101
  3. ALLOPURINOL [Concomitant]
     Dosage: 150 MG, 1X/DAY
     Dates: start: 20100101
  4. SUTENT [Suspect]
     Indication: METASTATIC RENAL CELL CARCINOMA
     Dosage: UNK
     Dates: start: 20110422
  5. ASPIRIN [Concomitant]
     Dosage: 100 MG, 1X/DAY
     Dates: start: 20100101

REACTIONS (1)
  - DEHYDRATION [None]
